FAERS Safety Report 5712419-7 (Version None)
Quarter: 2008Q2

REPORT INFORMATION
  Report Type: 
  Country: None (occurrence: None)
  Receive Date: 20080422
  Receipt Date: 20080415
  Transmission Date: 20081010
  Serious: Yes (Other)
  Sender: FDA-Public Use
  Company Number: PHHY2008JP01468

PATIENT
  Age: 69 Year
  Sex: Male

DRUGS (5)
  1. CARDENALIN [Concomitant]
     Dates: start: 20070421
  2. DIOVAN [Suspect]
     Indication: HYPERTENSION
     Dosage: 80 MG PER DAY
     Route: 048
     Dates: start: 20070317
  3. NORVASC [Concomitant]
     Dosage: 2.5 MG, UNK
     Dates: start: 20071020
  4. NICHI E-NATE [Concomitant]
     Dates: start: 20040821
  5. COLICOOL [Concomitant]
     Dates: start: 20040821

REACTIONS (2)
  - DRUG INEFFECTIVE [None]
  - INTERSTITIAL LUNG DISEASE [None]
